FAERS Safety Report 7808553-8 (Version None)
Quarter: 2011Q4

REPORT INFORMATION
  Report Type: 
  Country: None (occurrence: None)
  Receive Date: 20111012
  Receipt Date: 20111003
  Transmission Date: 20120403
  Serious: Yes (Other)
  Sender: FDA-Public Use
  Company Number: RU-JNJFOC-20111003255

PATIENT
  Age: 77 Year

DRUGS (3)
  1. DOCETAXEL [Suspect]
     Indication: NASOPHARYNGEAL CANCER
     Route: 065
  2. CISPLATIN [Suspect]
     Indication: NASOPHARYNGEAL CANCER
     Route: 065
  3. DOXORUBICIN HCL [Suspect]
     Indication: NASOPHARYNGEAL CANCER
     Route: 042

REACTIONS (3)
  - TOXICITY TO VARIOUS AGENTS [None]
  - OFF LABEL USE [None]
  - CONCOMITANT DISEASE AGGRAVATED [None]
